FAERS Safety Report 11090793 (Version 3)
Quarter: 2015Q2

REPORT INFORMATION
  Report Type: Spontaneous
  Country: ES (occurrence: ES)
  Receive Date: 20150505
  Receipt Date: 20150605
  Transmission Date: 20150821
  Serious: Yes (Other)
  Sender: FDA-Public Use
  Company Number: ES-INCYTE CORPORATION-2015IN001902

PATIENT
  Sex: Male

DRUGS (1)
  1. JAKAFI [Suspect]
     Active Substance: RUXOLITINIB
     Indication: MYELOFIBROSIS
     Dosage: 20 MG, BID
     Route: 065
     Dates: start: 20150305, end: 20150315

REACTIONS (3)
  - Necrotising retinitis [Unknown]
  - Herpes ophthalmic [Unknown]
  - Retinal detachment [Unknown]

NARRATIVE: CASE EVENT DATE: 20150305
